FAERS Safety Report 5648019-7 (Version None)
Quarter: 2008Q1

REPORT INFORMATION
  Report Type: 
  Country: None (occurrence: None)
  Receive Date: 20080229
  Receipt Date: 20080229
  Transmission Date: 20080703
  Serious: No
  Sender: FDA-Public Use
  Company Number: None

PATIENT
  Age: 81 Year
  Sex: Male

DRUGS (1)
  1. ACETAZOLAMIDE [Suspect]
     Dosage: 250 MG BID PO
     Route: 048
     Dates: start: 20071120, end: 20071205

REACTIONS (3)
  - ASTHENIA [None]
  - ATAXIA [None]
  - MEMORY IMPAIRMENT [None]
